FAERS Safety Report 19159346 (Version 1)
Quarter: 2021Q2

REPORT INFORMATION
  Report Type: Spontaneous
  Country: US (occurrence: US)
  Receive Date: 20210420
  Receipt Date: 20210420
  Transmission Date: 20210717
  Serious: No
  Sender: FDA-Public Use
  Company Number: US-ASTRAZENECA-2021A275569

PATIENT

DRUGS (1)
  1. BREZTRI [Suspect]
     Active Substance: BUDESONIDE\FORMOTEROL\GLYCOPYRRONIUM
     Route: 055

REACTIONS (6)
  - Dyspnoea [Unknown]
  - Halo vision [Unknown]
  - Muscle spasms [Unknown]
  - Visual impairment [Unknown]
  - Fear of death [Unknown]
  - Fall [Unknown]
